FAERS Safety Report 8078264-5 (Version None)
Quarter: 2012Q1

REPORT INFORMATION
  Report Type: 
  Country: None (occurrence: None)
  Receive Date: 20120123
  Receipt Date: 20120109
  Transmission Date: 20120608
  Serious: No
  Sender: FDA-Public Use
  Company Number: B0775584A

PATIENT
  Age: 73 Year
  Sex: Female

DRUGS (3)
  1. ALPRAZOLAM [Concomitant]
  2. ATORVASTATIN CALCIUM [Concomitant]
  3. PAROXETINE HYDROCHLORIDE [Suspect]
     Indication: DEPRESSION

REACTIONS (3)
  - GRANULOMA ANNULARE [None]
  - ANTINUCLEAR ANTIBODY POSITIVE [None]
  - PHOTOSENSITIVITY REACTION [None]
